FAERS Safety Report 13963025 (Version 2)
Quarter: 2017Q3

REPORT INFORMATION
  Report Type: Spontaneous
  Country: DE (occurrence: DE)
  Receive Date: 20170913
  Receipt Date: 20170921
  Transmission Date: 20171128
  Serious: Yes (Hospitalization)
  Sender: FDA-Public Use
  Company Number: DE-CONCORDIA PHARMACEUTICALS INC.-GSH201709-005102

PATIENT
  Age: 49 Year
  Sex: Female

DRUGS (9)
  1. MYCOPHENOLATE MOFETIL. [Suspect]
     Active Substance: MYCOPHENOLATE MOFETIL
     Indication: SUBACUTE CUTANEOUS LUPUS ERYTHEMATOSUS
     Route: 065
     Dates: start: 2014
  2. MYCOPHENOLATE MOFETIL. [Suspect]
     Active Substance: MYCOPHENOLATE MOFETIL
     Indication: NEUROPSYCHIATRIC LUPUS
  3. HYDROXYCHLOROQUINE [Suspect]
     Active Substance: HYDROXYCHLOROQUINE
     Indication: NEUROPSYCHIATRIC LUPUS
  4. RISPERIDONE. [Concomitant]
     Active Substance: RISPERIDONE
  5. VALPROATE SODIUM. [Concomitant]
     Active Substance: VALPROATE SODIUM
  6. OLANZAPINE. [Concomitant]
     Active Substance: OLANZAPINE
  7. CHLORPROTHIXENE [Concomitant]
     Active Substance: CHLORPROTHIXENE
  8. CORTISONE [Concomitant]
     Active Substance: CORTISONE\HYDROCORTISONE
  9. HYDROXYCHLOROQUINE [Suspect]
     Active Substance: HYDROXYCHLOROQUINE
     Indication: SUBACUTE CUTANEOUS LUPUS ERYTHEMATOSUS
     Route: 065
     Dates: start: 2014

REACTIONS (7)
  - Off label use [Unknown]
  - Rash [Recovered/Resolved]
  - Neuropsychiatric lupus [Recovered/Resolved]
  - Psychotic disorder [Recovered/Resolved]
  - Subacute cutaneous lupus erythematosus [Recovered/Resolved]
  - Condition aggravated [Unknown]
  - Drug ineffective [Unknown]

NARRATIVE: CASE EVENT DATE: 2014
